FAERS Safety Report 6353118 (Version 4)
Quarter: 2018Q4

REPORT INFORMATION
  Report Type: Spontaneous
  Country: JP (occurrence: JP)
  Receive Date: 20070710
  Receipt Date: 20181116
  Transmission Date: 20190205
  Serious: Yes (Other)
  Sender: FDA-Public Use
  Company Number: PHBS2007JP11151

PATIENT
  Age: 51 Year
  Sex: Male

DRUGS (9)
  1. NEORAL [Concomitant]
     Active Substance: CYCLOSPORINE
     Indication: PRODUCT USED FOR UNKNOWN INDICATION
     Dosage: UNK
     Route: 048
     Dates: start: 20060821, end: 20061011
  2. GLIVEC [Suspect]
     Active Substance: IMATINIB MESYLATE
     Indication: ACUTE LYMPHOCYTIC LEUKAEMIA
     Dosage: 400 MG, QD
     Route: 048
     Dates: start: 20060505
  3. GLIVEC [Suspect]
     Active Substance: IMATINIB MESYLATE
     Dosage: 400 MG, QD
     Route: 048
     Dates: start: 20060626, end: 20060705
  4. GLIVEC [Suspect]
     Active Substance: IMATINIB MESYLATE
     Dosage: 600 MG, QD
     Route: 048
     Dates: start: 20060719, end: 20060724
  5. PREDNISOLONE. [Concomitant]
     Active Substance: PREDNISOLONE
     Dosage: 0.5 MG, QD
     Route: 048
  6. GLIVEC [Suspect]
     Active Substance: IMATINIB MESYLATE
     Dosage: 400 MG, QD
     Route: 048
     Dates: start: 20060725, end: 20060727
  7. GLIVEC [Suspect]
     Active Substance: IMATINIB MESYLATE
     Dosage: 400 MG, QD
     Route: 048
     Dates: start: 20060912, end: 20061011
  8. PREDNISOLONE. [Concomitant]
     Active Substance: PREDNISOLONE
     Indication: PRODUCT USED FOR UNKNOWN INDICATION
     Dosage: 4 MG, QD
     Route: 048
     Dates: start: 20061201
  9. GLIVEC [Suspect]
     Active Substance: IMATINIB MESYLATE
     Dosage: 600 MG, QD
     Route: 048
     Dates: start: 20061012

REACTIONS (2)
  - Acute disseminated encephalomyelitis [Unknown]
  - Progressive multifocal leukoencephalopathy [Recovering/Resolving]

NARRATIVE: CASE EVENT DATE: 200706
